FAERS Safety Report 10101592 (Version 1)
Quarter: 2014Q2

REPORT INFORMATION
  Report Type: Spontaneous
  Country: GB (occurrence: None)
  Receive Date: 20140422
  Receipt Date: 20140422
  Transmission Date: 20141212
  Serious: Yes (Other)
  Sender: FDA-Public Use
  Company Number: FK201401373

PATIENT
  Age: 69 Year
  Sex: Female

DRUGS (4)
  1. LETRAZOLE (FEMARA) 2.5 MG GENERIC FEMARA [Suspect]
     Indication: BREAST CANCER
     Dosage: 1 DF
     Route: 048
     Dates: start: 20121201, end: 20130615
  2. ANASTROZOLE (MANUFACTURER UNKNOWN) (ANASTROZOLE) (ANASTROZOLE) [Suspect]
     Dosage: 1 DF
     Route: 048
     Dates: start: 20130701
  3. PARACETAMOL (PARACETAMOL) [Concomitant]
  4. TURMERIC (CURCUMA LONGA RHIZOME) [Concomitant]

REACTIONS (3)
  - Bladder pain [None]
  - Urinary tract infection [None]
  - Bone pain [None]
